FAERS Safety Report 10583333 (Version 5)
Quarter: 2014Q4

REPORT INFORMATION
  Report Type: Spontaneous
  Country: CA (occurrence: CA)
  Receive Date: 20141114
  Receipt Date: 20141230
  Transmission Date: 20150529
  Serious: Yes (Other)
  Sender: FDA-Public Use
  Company Number: CHPA2014CA014906

PATIENT
  Age: 62 Year
  Sex: Female

DRUGS (15)
  1. VOLTAREN [Suspect]
     Active Substance: DICLOFENAC SODIUM
     Indication: INTERVERTEBRAL DISC DISORDER
  2. ZOPICLONE [Suspect]
     Active Substance: ZOPICLONE
     Indication: INSOMNIA
     Dosage: 15 MG, AT NIGHT
     Route: 065
  3. GABAPENTIN. [Suspect]
     Active Substance: GABAPENTIN
     Dosage: UNK, BID
     Route: 065
  4. CLORAZEPATE [Suspect]
     Active Substance: CLORAZEPATE DIPOTASSIUM
     Dosage: 15 MG, TID
     Route: 048
  5. GABAPENTIN. [Suspect]
     Active Substance: GABAPENTIN
     Indication: TREMOR
     Dosage: UNK, TID
     Route: 065
     Dates: start: 2013
  6. BUPROPION HCL ER [Concomitant]
     Active Substance: BUPROPION HYDROCHLORIDE
     Indication: PRODUCT USED FOR UNKNOWN INDICATION
     Dosage: 300 MG, QD
     Route: 048
  7. TRAZODONE [Suspect]
     Active Substance: TRAZODONE HYDROCHLORIDE
     Indication: PRODUCT USED FOR UNKNOWN INDICATION
     Dosage: 50 MG, QD AT NIGHT
     Route: 065
     Dates: start: 2012
  8. ESOMEPRAZOLE [Suspect]
     Active Substance: ESOMEPRAZOLE
     Indication: PRODUCT USED FOR UNKNOWN INDICATION
     Dosage: 40 MG, QD
     Route: 065
  9. VOLTAREN [Suspect]
     Active Substance: DICLOFENAC SODIUM
     Indication: JOINT SWELLING
     Dosage: 1 SQUEEZE, UNK
     Route: 061
     Dates: start: 201408
  10. MORPHINE [Suspect]
     Active Substance: MORPHINE
     Indication: PAIN
     Dosage: UNK, TID
     Route: 065
     Dates: start: 2014
  11. CO ETIDROCAL [Suspect]
     Active Substance: CALCIUM CARBONATE\ETIDRONATE DISODIUM
     Indication: PRODUCT USED FOR UNKNOWN INDICATION
     Dosage: 500 MG, QD
     Route: 065
     Dates: start: 2011
  12. VOLTAREN [Suspect]
     Active Substance: DICLOFENAC SODIUM
     Indication: ARTHRALGIA
     Dosage: 3 SQUEEZES, ONCE OR TWICE A DAY AND AT NIGHT
     Route: 061
     Dates: start: 2011
  13. VOLTAREN [Suspect]
     Active Substance: DICLOFENAC SODIUM
     Indication: OFF LABEL USE
  14. IBUPROFEN SANDOZ [Suspect]
     Active Substance: IBUPROFEN
     Indication: PRODUCT USED FOR UNKNOWN INDICATION
     Dosage: 100 MG, QD
     Route: 065
     Dates: start: 2012
  15. CIPRALEX [Suspect]
     Active Substance: ESCITALOPRAM OXALATE
     Indication: PRODUCT USED FOR UNKNOWN INDICATION
     Dosage: 20 MG, HS
     Route: 065
     Dates: start: 2012

REACTIONS (28)
  - Cough [Not Recovered/Not Resolved]
  - Intervertebral disc disorder [Not Recovered/Not Resolved]
  - Peripheral swelling [Recovering/Resolving]
  - Motor dysfunction [Recovering/Resolving]
  - Alopecia [Recovering/Resolving]
  - Therapeutic response decreased [Unknown]
  - Lymphoma [Recovered/Resolved]
  - Bronchitis [Recovered/Resolved]
  - Photopsia [Recovering/Resolving]
  - Therapeutic response unexpected [Unknown]
  - Inappropriate schedule of drug administration [Unknown]
  - Respiratory arrest [Recovered/Resolved]
  - Chondropathy [Recovered/Resolved]
  - Hyperhidrosis [Not Recovered/Not Resolved]
  - Fall [Recovered/Resolved]
  - Mobility decreased [Recovering/Resolving]
  - Pain [Unknown]
  - Fatigue [Recovering/Resolving]
  - Pneumonia [Not Recovered/Not Resolved]
  - Feeling of body temperature change [Not Recovered/Not Resolved]
  - Arthritis [Not Recovered/Not Resolved]
  - Tremor [Recovering/Resolving]
  - Panic attack [Recovering/Resolving]
  - Nausea [Recovered/Resolved]
  - Lymphoedema [Recovering/Resolving]
  - Breath sounds abnormal [Not Recovered/Not Resolved]
  - Depression [Recovering/Resolving]
  - Incorrect drug administration duration [Unknown]

NARRATIVE: CASE EVENT DATE: 2011
